FAERS Safety Report 11738136 (Version 2)
Quarter: 2015Q4

REPORT INFORMATION
  Report Type: Spontaneous
  Country: US (occurrence: US)
  Receive Date: 20151113
  Receipt Date: 20151123
  Transmission Date: 20160304
  Serious: Yes (Other)
  Sender: FDA-Public Use
  Company Number: US-BAYER-2015-465196

PATIENT
  Age: 89 Year
  Sex: Female
  Weight: 55.33 kg

DRUGS (1)
  1. OXYTROL FOR WOMEN [Suspect]
     Active Substance: OXYBUTYNIN
     Indication: HYPERTONIC BLADDER
     Dosage: 1 PATCH IN EVERY 4 DAYS
     Route: 061
     Dates: start: 20150826

REACTIONS (5)
  - Product use issue [None]
  - Drug ineffective [None]
  - Vaginal haemorrhage [Recovered/Resolved]
  - Contraindicated drug administered [None]
  - Urinary tract infection [Not Recovered/Not Resolved]

NARRATIVE: CASE EVENT DATE: 20151105
